FAERS Safety Report 20729845 (Version 1)
Quarter: 2022Q2

REPORT INFORMATION
  Report Type: Spontaneous
  Country: US (occurrence: US)
  Receive Date: 20220420
  Receipt Date: 20220420
  Transmission Date: 20220720
  Serious: Yes (Life-Threatening, Other)
  Sender: FDA-Public Use
  Company Number: US-Vifor (International) Inc.-VIT-2022-02579

PATIENT
  Age: 58 Year
  Sex: Male

DRUGS (3)
  1. MIRCERA [Suspect]
     Active Substance: METHOXY POLYETHYLENE GLYCOL-EPOETIN BETA
     Indication: Nephrogenic anaemia
     Route: 042
     Dates: start: 20220224, end: 20220224
  2. MIRCERA [Suspect]
     Active Substance: METHOXY POLYETHYLENE GLYCOL-EPOETIN BETA
     Route: 042
     Dates: start: 20220310, end: 20220310
  3. MIRCERA [Suspect]
     Active Substance: METHOXY POLYETHYLENE GLYCOL-EPOETIN BETA
     Route: 042
     Dates: start: 20220324, end: 20220324

REACTIONS (6)
  - Drug hypersensitivity [Recovered/Resolved]
  - Pupil fixed [Recovered/Resolved]
  - Musculoskeletal stiffness [Recovered/Resolved]
  - Aphasia [Recovered/Resolved]
  - Feeling abnormal [Recovered/Resolved]
  - Unresponsive to stimuli [Unknown]

NARRATIVE: CASE EVENT DATE: 20220310
